FAERS Safety Report 7349954-4 (Version None)
Quarter: 2011Q1

REPORT INFORMATION
  Report Type: 
  Country: None (occurrence: None)
  Receive Date: 20110314
  Receipt Date: 20110304
  Transmission Date: 20110831
  Serious: Yes (Hospitalization)
  Sender: FDA-Public Use
  Company Number: US-BRISTOL-MYERS SQUIBB COMPANY-15591787

PATIENT

DRUGS (1)
  1. AVALIDE [Suspect]

REACTIONS (3)
  - SYNCOPE [None]
  - PALPITATIONS [None]
  - HYPERHIDROSIS [None]
